FAERS Safety Report 11859097 (Version 3)
Quarter: 2016Q4

REPORT INFORMATION
  Report Type: Report from Study
  Country: KR (occurrence: KR)
  Receive Date: 20151222
  Receipt Date: 20161118
  Transmission Date: 20170206
  Serious: Yes (Life-Threatening, Hospitalization)
  Sender: FDA-Public Use
  Company Number: KR-ROCHE-1539971

PATIENT
  Age: 57 Year
  Sex: Female
  Weight: 51.2 kg

DRUGS (22)
  1. ATEZOLIZUMAB [Suspect]
     Active Substance: ATEZOLIZUMAB
     Indication: NEOPLASM
     Dosage: DATE OF MOST RECENT DOSE PRIOR TO AE ONSET: 13/FEB/2015 (14:13) 800 MG.
     Route: 042
     Dates: start: 20141205
  2. CEFTRIAXONE. [Concomitant]
     Active Substance: CEFTRIAXONE
     Indication: DIARRHOEA
  3. SODIUM BICARBONATE. [Concomitant]
     Active Substance: SODIUM BICARBONATE
     Indication: OEDEMA
     Route: 065
     Dates: start: 20150202
  4. METRONIDAZOLE. [Concomitant]
     Active Substance: METRONIDAZOLE
     Indication: DIARRHOEA
  5. SPIRONOLACTONE. [Concomitant]
     Active Substance: SPIRONOLACTONE
     Indication: OEDEMA
     Route: 065
     Dates: start: 20150123, end: 20150213
  6. LIVAFRAMIN [Concomitant]
     Indication: DECREASED APPETITE
     Route: 065
     Dates: start: 20150127, end: 20150128
  7. DEXTROSE. [Concomitant]
     Active Substance: DEXTROSE
     Indication: OEDEMA
     Dosage: WITH SODIUM AND POTASSIUM
     Route: 065
     Dates: start: 20150124, end: 20150124
  8. METRONIDAZOLE. [Concomitant]
     Active Substance: METRONIDAZOLE
     Indication: CELLULITIS
     Dosage: 3 OTHER
     Route: 065
     Dates: start: 20150124, end: 20150203
  9. CEFAZOLIN [Concomitant]
     Active Substance: CEFAZOLIN
     Indication: CELLULITIS
     Route: 065
     Dates: start: 20150124, end: 20150124
  10. CLINDAMYCIN. [Concomitant]
     Active Substance: CLINDAMYCIN
     Indication: CELLULITIS
     Route: 065
     Dates: start: 20150124, end: 20150124
  11. FEBUXOSTAT. [Concomitant]
     Active Substance: FEBUXOSTAT
     Indication: BLOOD URIC ACID INCREASED
     Route: 065
     Dates: start: 20150203, end: 20150225
  12. FUROSEMIDE. [Concomitant]
     Active Substance: FUROSEMIDE
     Indication: PROPHYLAXIS
     Route: 065
     Dates: start: 20150130, end: 20150201
  13. FUROSEMIDE. [Concomitant]
     Active Substance: FUROSEMIDE
     Route: 065
     Dates: start: 20150202, end: 20150203
  14. TRIZELE [Concomitant]
     Active Substance: METRONIDAZOLE
     Indication: CELLULITIS
     Dosage: 3 OTHER
     Route: 065
     Dates: start: 20150124, end: 20150203
  15. CEFTRIAXONE. [Concomitant]
     Active Substance: CEFTRIAXONE
     Indication: CELLULITIS
     Route: 065
     Dates: start: 20150124, end: 20150225
  16. FLUCONAZOLE. [Concomitant]
     Active Substance: FLUCONAZOLE
     Indication: CELLULITIS
     Route: 065
     Dates: start: 20150217, end: 20150225
  17. OFLOXACIN. [Concomitant]
     Active Substance: OFLOXACIN
     Dosage: 1 UNIT
     Route: 065
     Dates: start: 20141218
  18. DEXTROSE. [Concomitant]
     Active Substance: DEXTROSE
     Indication: CELLULITIS
     Route: 065
     Dates: start: 20150124, end: 20150225
  19. COBIMETINIB [Suspect]
     Active Substance: COBIMETINIB
     Indication: NEOPLASM
     Dosage: DATE OF MOST RECENT DOSE PRIOR TO AE ONSET: 14/FEB/2015 (14:47), 60 MG
     Route: 048
     Dates: start: 20141219
  20. HYDROCORTISONE. [Concomitant]
     Active Substance: HYDROCORTISONE
     Indication: RASH
     Route: 065
     Dates: start: 20150109, end: 20150115
  21. ALBUMINA 20% [Concomitant]
     Indication: PROPHYLAXIS
     Route: 065
     Dates: start: 20141124, end: 20150225
  22. REFRESH PLUS [Concomitant]
     Active Substance: CARBOXYMETHYLCELLULOSE SODIUM
     Indication: DRY EYE
     Dosage: 1 UNIT
     Route: 065
     Dates: start: 20141218

REACTIONS (1)
  - Asthenia [Not Recovered/Not Resolved]

NARRATIVE: CASE EVENT DATE: 20150214
